FAERS Safety Report 7256789-X (Version None)
Quarter: 2011Q1

REPORT INFORMATION
  Report Type: 
  Country: None (occurrence: None)
  Receive Date: 20110129
  Receipt Date: 20100713
  Transmission Date: 20110831
  Serious: No
  Sender: FDA-Public Use
  Company Number: US-ABBOTT-10P-163-0656981-00

PATIENT
  Age: 49 Year
  Sex: Female

DRUGS (17)
  1. HUMIRA [Suspect]
     Indication: RHEUMATOID ARTHRITIS
     Dates: start: 20100613
  2. IMITREX [Concomitant]
     Indication: MIGRAINE
  3. PROPRANOLOL [Concomitant]
     Indication: MIGRAINE
  4. FLEXERIL [Concomitant]
     Indication: MUSCLE SPASMS
  5. AMBIEN [Concomitant]
     Indication: INSOMNIA
  6. CYMBALTA [Concomitant]
     Indication: DEPRESSION
  7. ZYRTEC [Concomitant]
     Indication: HYPERSENSITIVITY
  8. FIORINAL [Concomitant]
     Indication: MIGRAINE
  9. VIVELLE [Concomitant]
     Indication: MENOPAUSE
  10. TOPAMAX [Concomitant]
     Indication: DEPRESSION
  11. ZEGERID OTC [Concomitant]
     Indication: GASTROOESOPHAGEAL REFLUX DISEASE
  12. ATTVAN [Concomitant]
     Indication: ANXIETY
     Dosage: 1/2 PILL
  13. RESTASIS [Concomitant]
     Indication: DRY EYE
  14. FLECTOR [Concomitant]
     Indication: RHEUMATOID ARTHRITIS
  15. MTX [Concomitant]
     Indication: RHEUMATOID ARTHRITIS
  16. FOLIC ACID [Concomitant]
     Indication: VITAMIN SUPPLEMENTATION
  17. DILPIAZEL [Concomitant]
     Indication: RAYNAUD'S PHENOMENON

REACTIONS (3)
  - INJECTION SITE ERYTHEMA [None]
  - DEVICE MALFUNCTION [None]
  - INJECTION SITE PRURITUS [None]
